FAERS Safety Report 9262330 (Version 1)
Quarter: 2013Q2

REPORT INFORMATION
  Report Type: Spontaneous
  Country: US (occurrence: US)
  Receive Date: 20130430
  Receipt Date: 20130430
  Transmission Date: 20140414
  Serious: Yes (Other)
  Sender: FDA-Public Use
  Company Number: PHEH2013US009293

PATIENT
  Age: 23 Year
  Sex: Male

DRUGS (1)
  1. TRILEPTAL [Suspect]
     Dosage: 1500 MG, DAILY (600 MG MRG, 300 MG AFTERNOON AND 600 MG AT NIGHT)

REACTIONS (2)
  - Convulsion [Unknown]
  - Decreased appetite [Unknown]
